FAERS Safety Report 19905170 (Version 1)
Quarter: 2021Q4

REPORT INFORMATION
  Report Type: Spontaneous
  Country: DE (occurrence: DE)
  Receive Date: 20211001
  Receipt Date: 20211001
  Transmission Date: 20220303
  Serious: Yes (Other)
  Sender: FDA-Public Use
  Company Number: 2021A737855

PATIENT
  Sex: Female

DRUGS (2)
  1. LYNPARZA [Suspect]
     Active Substance: OLAPARIB
     Indication: Fallopian tube cancer
     Dosage: HIGHER DOSE DOSE
     Route: 048
  2. LYNPARZA [Suspect]
     Active Substance: OLAPARIB
     Indication: Fallopian tube cancer
     Dosage: 2 X 2 CAPSULES A 50 MG PER DAY
     Route: 048
     Dates: start: 2016, end: 2021

REACTIONS (6)
  - Polyneuropathy [Recovering/Resolving]
  - Thrombocytopenia [Unknown]
  - Platelet count abnormal [Unknown]
  - White blood cell count abnormal [Unknown]
  - Haemoglobin abnormal [Unknown]
  - Dizziness [Recovering/Resolving]

NARRATIVE: CASE EVENT DATE: 20210501
